FAERS Safety Report 10428599 (Version 3)
Quarter: 2014Q3

REPORT INFORMATION
  Report Type: Spontaneous
  Country: US (occurrence: US)
  Receive Date: 20140903
  Receipt Date: 20140912
  Transmission Date: 20150326
  Serious: Yes (Death, Hospitalization)
  Sender: FDA-Public Use
  Company Number: US-ACTELION-A-NJ2014-99465

PATIENT
  Age: 61 Year
  Sex: Male

DRUGS (6)
  1. MIDODRINE [Concomitant]
     Active Substance: MIDODRINE
  2. PROAMATINE [Concomitant]
     Active Substance: MIDODRINE HYDROCHLORIDE
  3. VELETRI [Suspect]
     Active Substance: EPOPROSTENOL
     Indication: PULMONARY ARTERIAL HYPERTENSION
     Dosage: 37 UNK, UNK
     Route: 042
     Dates: start: 20131231
  4. SILDENAFIL [Concomitant]
     Active Substance: SILDENAFIL
     Dosage: UNK
     Dates: start: 20140102, end: 20140502
  5. OPSUMIT [Suspect]
     Active Substance: MACITENTAN
     Indication: PULMONARY ARTERIAL HYPERTENSION
     Dosage: 10 MG, QD
     Route: 048
     Dates: start: 20140102
  6. VELETRI [Suspect]
     Active Substance: EPOPROSTENOL
     Dosage: 20 NG/KG, PER MIN
     Route: 042
     Dates: start: 20131231

REACTIONS (14)
  - Fluid overload [Recovering/Resolving]
  - Asthenia [Unknown]
  - Hypotension [Recovering/Resolving]
  - Fatigue [Unknown]
  - Right ventricular failure [Recovering/Resolving]
  - Eating disorder [Unknown]
  - Pericardial effusion [Recovering/Resolving]
  - Pulmonary arterial hypertension [Fatal]
  - Disease progression [Fatal]
  - Pain [Unknown]
  - Pleural effusion [Recovering/Resolving]
  - Weight decreased [Unknown]
  - Dyspnoea [Unknown]
  - Dizziness [Unknown]

NARRATIVE: CASE EVENT DATE: 20140513
